FAERS Safety Report 25214273 (Version 1)
Quarter: 2025Q2

REPORT INFORMATION
  Report Type: Spontaneous
  Country: GB (occurrence: GB)
  Receive Date: 20250418
  Receipt Date: 20250418
  Transmission Date: 20250716
  Serious: Yes (Hospitalization)
  Sender: GILEAD
  Company Number: GB-GILEAD-2025-0710556

PATIENT
  Sex: Female

DRUGS (1)
  1. EPCLUSA [Suspect]
     Active Substance: SOFOSBUVIR\VELPATASVIR
     Indication: Chronic hepatitis C
     Dosage: 1 DOSAGE FORM, QD (400MG SOFOSBUVIR, 100MG VELPATASVIR)
     Route: 048

REACTIONS (3)
  - Chest pain [Unknown]
  - Pharyngeal swelling [Unknown]
  - Anxiety [Unknown]
